FAERS Safety Report 6684447-9 (Version None)
Quarter: 2010Q2

REPORT INFORMATION
  Report Type: 
  Country: None (occurrence: None)
  Receive Date: 20100416
  Receipt Date: 20100412
  Transmission Date: 20101027
  Serious: Yes (Hospitalization)
  Sender: FDA-Public Use
  Company Number: GXKR2010DE04072

PATIENT
  Age: 72 Year
  Sex: Female
  Weight: 52 kg

DRUGS (7)
  1. DOXEPIN HCL [Suspect]
     Indication: DEPRESSION
     Dosage: 50-25-50-25 MG
     Route: 048
     Dates: start: 20040101
  2. NITOMAN [Suspect]
     Indication: DYSKINESIA
     Dosage: 25 MG, QID
     Route: 048
     Dates: start: 20081001
  3. NITOMAN [Suspect]
     Dosage: 12.5 MG, QID
     Dates: start: 20090615
  4. BETAHISTINE [Concomitant]
     Route: 048
  5. MOVICOL [Concomitant]
     Route: 048
  6. XIMOVAN [Concomitant]
     Route: 048
  7. CALCIUM [Concomitant]
     Route: 048

REACTIONS (1)
  - PARKINSON'S DISEASE [None]
